FAERS Safety Report 6116206-X (Version None)
Quarter: 2009Q1

REPORT INFORMATION
  Report Type: 
  Country: None (occurrence: None)
  Receive Date: 20090314
  Receipt Date: 20081202
  Transmission Date: 20090719
  Serious: No
  Sender: FDA-Public Use
  Company Number: US-ABBOTT-08P-163-0490765-00

PATIENT
  Sex: Female
  Weight: 52.664 kg

DRUGS (3)
  1. HUMIRA [Suspect]
     Indication: RHEUMATOID ARTHRITIS
     Route: 058
     Dates: start: 20081201
  2. PREDNISONE [Concomitant]
     Indication: RHEUMATOID ARTHRITIS
     Dosage: 3 PILLS ONCE A DAY
     Route: 048
     Dates: start: 20070101
  3. RIFATER [Concomitant]
     Indication: TUBERCULOSIS

REACTIONS (2)
  - INCORRECT DOSE ADMINISTERED [None]
  - WRONG TECHNIQUE IN DRUG USAGE PROCESS [None]
